FAERS Safety Report 16109334 (Version 2)
Quarter: 2019Q3

REPORT INFORMATION
  Report Type: Spontaneous
  Country: US (occurrence: US)
  Receive Date: 20190324
  Receipt Date: 20190717
  Transmission Date: 20191004
  Serious: Yes (Hospitalization)
  Sender: FDA-Public Use
  Company Number: US-TEVA-2019-US-1030220

PATIENT
  Sex: Female

DRUGS (2)
  1. CELECOXIB ACTAVIS [Suspect]
     Active Substance: CELECOXIB
     Indication: ARTHRITIS
     Dosage: 200 MILLIGRAM DAILY;
     Route: 048
     Dates: start: 2015
  2. CELECOXIB-ALEMBIC [Suspect]
     Active Substance: CELECOXIB
     Indication: ARTHRITIS
     Dosage: 200 MILLIGRAM DAILY;
     Route: 048

REACTIONS (3)
  - Erythema [Recovered/Resolved]
  - Drug ineffective [Unknown]
  - Atrial fibrillation [Unknown]
